FAERS Safety Report 23038743 (Version 2)
Quarter: 2023Q4

REPORT INFORMATION
  Report Type: Report from Study
  Country: US (occurrence: US)
  Receive Date: 20231006
  Receipt Date: 20231024
  Transmission Date: 20240109
  Serious: Yes (Hospitalization)
  Sender: FDA-Public Use
  Company Number: US-002147023-NVSC2023US210632

PATIENT
  Age: 69 Year
  Sex: Female

DRUGS (3)
  1. MAYZENT [Suspect]
     Active Substance: SIPONIMOD
     Indication: Multiple sclerosis
     Dosage: 2 MG/KG, QD (ONCE DAILY)
     Route: 048
     Dates: start: 20230923
  2. MAYZENT [Suspect]
     Active Substance: SIPONIMOD
     Dosage: 2 MG, QD
     Route: 065
     Dates: start: 20230928
  3. MAYZENT [Suspect]
     Active Substance: SIPONIMOD
     Dosage: 2 MG/KG, QD
     Route: 048
     Dates: end: 20231003

REACTIONS (4)
  - Heart rate decreased [Recovering/Resolving]
  - Dizziness [Recovering/Resolving]
  - Headache [Recovering/Resolving]
  - Anxiety [Recovering/Resolving]

NARRATIVE: CASE EVENT DATE: 20230928
